FAERS Safety Report 4305154-3 (Version None)
Quarter: 2004Q1

REPORT INFORMATION
  Report Type: 
  Country: None (occurrence: None)
  Receive Date: 20040223
  Receipt Date: 20040108
  Transmission Date: 20041129
  Serious: No
  Sender: FDA-Public Use
  Company Number: SU-2004-002047

PATIENT
  Age: 76 Year
  Sex: Female
  Weight: 62.5964 kg

DRUGS (7)
  1. BENICAR [Suspect]
     Indication: HYPERTENSION
     Dosage: 10 MG QD PO
     Route: 048
     Dates: start: 20040107, end: 20040107
  2. XANAX [Concomitant]
  3. CLONIDINE [Concomitant]
  4. TOPROL-XL [Concomitant]
  5. CATAPRES [Concomitant]
  6. ACCUPRIL [Concomitant]
  7. LASIX [Concomitant]

REACTIONS (1)
  - BLOOD PRESSURE INCREASED [None]
